FAERS Safety Report 5622867-1 (Version None)
Quarter: 2008Q1

REPORT INFORMATION
  Report Type: 
  Country: None (occurrence: None)
  Receive Date: 20080207
  Receipt Date: 20080207
  Transmission Date: 20080703
  Serious: Yes (Other)
  Sender: FDA-Public Use
  Company Number: None

PATIENT
  Sex: Male
  Weight: 95.2554 kg

DRUGS (2)
  1. OCTAGAM [Suspect]
     Indication: DEMYELINATING POLYNEUROPATHY
     Dosage: 50GM/1000ML ONCE DAY WEEKLY IV
     Route: 042
     Dates: start: 20071221
  2. OCTAGAM [Suspect]

REACTIONS (7)
  - ANGIOEDEMA [None]
  - DYSPHONIA [None]
  - HYPOTENSION [None]
  - LIP SWELLING [None]
  - NAUSEA [None]
  - OEDEMA PERIPHERAL [None]
  - RESPIRATORY DISORDER [None]
